APPROVED DRUG PRODUCT: FLUOROURACIL
Active Ingredient: FLUOROURACIL
Strength: 500MG/10ML (50MG/ML)
Dosage Form/Route: INJECTABLE;INJECTION
Application: A210123 | Product #001 | TE Code: AP
Applicant: GLAND PHARMA LTD
Approved: Oct 27, 2017 | RLD: No | RS: No | Type: RX